FAERS Safety Report 8261655-7 (Version None)
Quarter: 2012Q2

REPORT INFORMATION
  Report Type: 
  Country: None (occurrence: None)
  Receive Date: 20120405
  Receipt Date: 20120405
  Transmission Date: 20120825
  Serious: Yes (Hospitalization)
  Sender: FDA-Public Use
  Company Number: None

PATIENT
  Sex: Male
  Weight: 70 kg

DRUGS (1)
  1. IMMUNE GLOBULIN (HUMAN) [Suspect]
     Indication: GUILLAIN-BARRE SYNDROME
     Dosage: 25 G
     Route: 042
     Dates: start: 20120327, end: 20120331

REACTIONS (2)
  - HAEMOLYTIC ANAEMIA [None]
  - HAEMATURIA [None]
